FAERS Safety Report 17020547 (Version 3)
Quarter: 2019Q4

REPORT INFORMATION
  Report Type: Spontaneous
  Country: US (occurrence: US)
  Receive Date: 20191112
  Receipt Date: 20191219
  Transmission Date: 20200122
  Serious: Yes (Hospitalization)
  Sender: FDA-Public Use
  Company Number: US-GLAXOSMITHKLINE-US2019AMR202700

PATIENT
  Age: 36 Year
  Sex: Female

DRUGS (2)
  1. NUCALA [Suspect]
     Active Substance: MEPOLIZUMAB
     Indication: ASTHMA
     Dosage: UNK, CYC
     Route: 065
     Dates: start: 20191011
  2. NUCALA [Suspect]
     Active Substance: MEPOLIZUMAB
     Indication: PULMONARY EOSINOPHILIA

REACTIONS (5)
  - Injection site urticaria [Unknown]
  - Product dose omission [Unknown]
  - Nasal oedema [Unknown]
  - Malaise [Not Recovered/Not Resolved]
  - Lip swelling [Unknown]

NARRATIVE: CASE EVENT DATE: 20191108
